FAERS Safety Report 25750392 (Version 3)
Quarter: 2025Q4

REPORT INFORMATION
  Report Type: Spontaneous
  Country: SG (occurrence: SG)
  Receive Date: 20250902
  Receipt Date: 20251010
  Transmission Date: 20260117
  Serious: Yes (Other)
  Sender: MYLAN
  Company Number: SG-MYLANLABS-2025M1074053

PATIENT
  Age: 52 Year
  Sex: Male

DRUGS (4)
  1. ATORVASTATIN [Interacting]
     Active Substance: ATORVASTATIN
     Indication: Lipid management
     Dosage: 20 MILLIGRAM, PM (Q.P.M.)
  2. ATORVASTATIN [Interacting]
     Active Substance: ATORVASTATIN
     Dosage: 10 MILLIGRAM, PM (Q.P.M.)
  3. TICAGRELOR [Interacting]
     Active Substance: TICAGRELOR
     Indication: Antiplatelet therapy
     Dosage: 90 MILLIGRAM, BID
  4. EZETIMIBE [Concomitant]
     Active Substance: EZETIMIBE
     Indication: Lipid management
     Dosage: 10 MILLIGRAM, PM (Q.P.M.)

REACTIONS (4)
  - Myopathy [Unknown]
  - Drug level increased [Unknown]
  - Drug interaction [Unknown]
  - Drug-genetic interaction [Unknown]
